FAERS Safety Report 16959006 (Version 4)
Quarter: 2019Q4

REPORT INFORMATION
  Report Type: Report from Study
  Country: None (occurrence: US)
  Receive Date: 20191024
  Receipt Date: 20191120
  Transmission Date: 20200122
  Serious: Yes (Hospitalization, Other)
  Sender: FDA-Public Use
  Company Number: US-ABBVIE-19P-163-2975390-00

PATIENT
  Age: 34 Year
  Sex: Female
  Weight: 77.18 kg

DRUGS (1)
  1. SKYRIZI [Suspect]
     Active Substance: RISANKIZUMAB-RZAA
     Indication: PSORIASIS
     Route: 058
     Dates: start: 20191016

REACTIONS (13)
  - Bronchospasm [Recovered/Resolved]
  - Cerebral haemorrhage [Recovering/Resolving]
  - Endotracheal intubation [Recovered/Resolved]
  - Erythema [Recovering/Resolving]
  - Swelling [Recovering/Resolving]
  - Arthropathy [Recovering/Resolving]
  - Peripheral swelling [Recovering/Resolving]
  - Feeling hot [Recovering/Resolving]
  - Joint swelling [Recovering/Resolving]
  - Seizure [Recovered/Resolved]
  - Head injury [Recovered/Resolved]
  - Staphylococcal infection [Recovered/Resolved]
  - Device related infection [Not Recovered/Not Resolved]

NARRATIVE: CASE EVENT DATE: 20191019
